FAERS Safety Report 6619246-7 (Version None)
Quarter: 2010Q1

REPORT INFORMATION
  Report Type: 
  Country: None (occurrence: None)
  Receive Date: 20100304
  Receipt Date: 20100204
  Transmission Date: 20100710
  Serious: Yes (Death)
  Sender: FDA-Public Use
  Company Number: THYM-1001034

PATIENT
  Age: 33 Year
  Sex: Male
  Weight: 55 kg

DRUGS (31)
  1. THYMOGLOBULIN [Suspect]
     Indication: ACUTE GRAFT VERSUS HOST DISEASE
     Dosage: 2.5 MG, ONCE, INTRAVENOUS ; 150 MG, QD, INTRAVENOUS
     Route: 042
     Dates: start: 20090420, end: 20090420
  2. THYMOGLOBULIN [Suspect]
     Indication: ACUTE GRAFT VERSUS HOST DISEASE
     Dosage: 2.5 MG, ONCE, INTRAVENOUS ; 150 MG, QD, INTRAVENOUS
     Route: 042
     Dates: start: 20090421, end: 20090424
  3. TACROLIMUS [Concomitant]
  4. METHYLPREDNISOLONE (METHYLPREDNISOLONE SODIUM SUCCINATE) [Concomitant]
  5. FLUCONAZOLE [Concomitant]
  6. MEROPENEM [Concomitant]
  7. THROMBOMODULIN ALPHA (GENETICAL RECOMBINATION) [Concomitant]
  8. MYCOPHENOLATE MOFETIL [Concomitant]
  9. NAFAMOSTAT MESILATE (NAFAMOSTAT MESILATE) [Concomitant]
  10. HEPARIN SODIUM [Concomitant]
  11. MAGNESIUM SULFATE [Concomitant]
  12. MORPHINE [Concomitant]
  13. CEFEPIME HYDROCHLORIDE [Concomitant]
  14. OMEPRAZOLE [Concomitant]
  15. HYPERALIMENTATE BASIC SOLUTION [Concomitant]
  16. AMINO ACIDS [Concomitant]
  17. INSULIN HUMAN (INSULIN HUMAN) [Concomitant]
  18. FUROSEMIDE [Concomitant]
  19. MICAFUNGIN SODIUM (MICAFUNGIN SODIUM) [Concomitant]
  20. CLOMIPRAMINE HCL [Concomitant]
  21. SOYBEAN OIL [Concomitant]
  22. MIXED AMINO ACIDS, ELECTROLYTES, CARBOHYDRATES, AND VITAMINS [Concomitant]
  23. BIAPENEM (BIAPENEM) [Concomitant]
  24. CALCIUM CHLORIDE [Concomitant]
  25. CARBENIN (BETAMIPRON, PANIPENEM) [Concomitant]
  26. GLYCYRRHIZIN/GLYCINE/CYSTEINE [Concomitant]
  27. POTASSIUM CHLORIDE [Concomitant]
  28. INFLIXIMAB (INFLIXAIMAB) [Concomitant]
  29. CILASTATIN W (CILASTATIN, IMIPENEM) [Concomitant]
  30. DEFEROXAMINE MESILATE (DEFEROXAMINE MESILATE) [Concomitant]
  31. PREDNISOLONE [Concomitant]

REACTIONS (4)
  - ACUTE GRAFT VERSUS HOST DISEASE IN INTESTINE [None]
  - CYTOMEGALOVIRUS TEST POSITIVE [None]
  - NO THERAPEUTIC RESPONSE [None]
  - PYREXIA [None]
